FAERS Safety Report 24094789 (Version 1)
Quarter: 2024Q3

REPORT INFORMATION
  Report Type: Spontaneous
  Country: CA (occurrence: CA)
  Receive Date: 20240716
  Receipt Date: 20240716
  Transmission Date: 20241016
  Serious: Yes (Death, Other)
  Sender: CELLTRION
  Company Number: CA-CELLTRION INC.-2024CA000260

PATIENT

DRUGS (11)
  1. TRUXIMA [Suspect]
     Active Substance: RITUXIMAB-ABBS
     Indication: Vasculitis
     Dosage: STARTED AT 12.5 ML/HR; INFUSION#1
     Route: 042
     Dates: start: 20240102
  2. TRUXIMA [Suspect]
     Active Substance: RITUXIMAB-ABBS
     Indication: Interstitial lung disease
     Dosage: 800 MG, INFUSION #3
     Route: 042
     Dates: start: 20240102
  3. TRUXIMA [Suspect]
     Active Substance: RITUXIMAB-ABBS
     Dosage: 800 MG
     Route: 042
     Dates: start: 20240102, end: 202401
  4. TRUXIMA [Suspect]
     Active Substance: RITUXIMAB-ABBS
     Dosage: 800 MG, INFUSION#4
     Route: 042
     Dates: start: 20240102
  5. TRUXIMA [Suspect]
     Active Substance: RITUXIMAB-ABBS
     Dosage: 800 MG, QW FOR 4WKS
     Route: 042
     Dates: start: 20240102, end: 2024
  6. PREDNISONE [Concomitant]
     Active Substance: PREDNISONE
     Dosage: 50 MG
  7. DIPHENHYDRAMINE HYDROCHLORIDE [Concomitant]
     Active Substance: DIPHENHYDRAMINE HYDROCHLORIDE
     Indication: Premedication
     Dosage: 50 MG
  8. METHYLPREDNISOLONE [Concomitant]
     Active Substance: METHYLPREDNISOLONE
     Indication: Premedication
     Dosage: 100 MG
  9. BENADRYL [Concomitant]
     Active Substance: DIPHENHYDRAMINE HYDROCHLORIDE
     Indication: Premedication
     Dosage: 50 MG
     Route: 048
  10. SOLU-MEDROL [Concomitant]
     Active Substance: METHYLPREDNISOLONE SODIUM SUCCINATE
     Indication: Premedication
     Dosage: 100 MG
     Route: 042
  11. ACETAMINOPHEN [Concomitant]
     Active Substance: ACETAMINOPHEN
     Indication: Premedication
     Dosage: ACETAMINOPHEN HELD AS PER PATIENT

REACTIONS (12)
  - Death [Fatal]
  - Blood pressure systolic increased [Recovering/Resolving]
  - Nervousness [Unknown]
  - Abdominal pain upper [Recovering/Resolving]
  - Poor venous access [Unknown]
  - Gait disturbance [Unknown]
  - Oral candidiasis [Recovered/Resolved]
  - Vomiting [Recovering/Resolving]
  - Refusal of treatment by patient [Unknown]
  - Antibiotic therapy [Unknown]
  - Intentional product use issue [Unknown]
  - Intentional dose omission [Unknown]

NARRATIVE: CASE EVENT DATE: 20240101
